FAERS Safety Report 22230370 (Version 3)
Quarter: 2023Q2

REPORT INFORMATION
  Report Type: Report from Study
  Country: CA (occurrence: CA)
  Receive Date: 20230419
  Receipt Date: 20230504
  Transmission Date: 20230722
  Serious: Yes (Death, Hospitalization, Other)
  Sender: FDA-Public Use
  Company Number: CA-JNJFOC-20230404448

PATIENT
  Age: 83 Year
  Sex: Male

DRUGS (1)
  1. IMBRUVICA [Suspect]
     Active Substance: IBRUTINIB
     Indication: Waldenstrom^s macroglobulinaemia
     Route: 048
     Dates: start: 202303, end: 20230424

REACTIONS (6)
  - Death [Fatal]
  - Fall [Unknown]
  - Skin infection [Unknown]
  - Off label use [Unknown]
  - Oxygen saturation decreased [Unknown]
  - Feeding disorder [Unknown]

NARRATIVE: CASE EVENT DATE: 20230424
